FAERS Safety Report 8970164 (Version 1)
Quarter: 2012Q4

REPORT INFORMATION
  Report Type: 
  Country: US (occurrence: US)
  Receive Date: 20121217
  Receipt Date: 20121217
  Transmission Date: 20130627
  Serious: No
  Sender: FDA-Public Use
  Company Number: US-PFIZER INC-2012313651

PATIENT
  Age: 53 Year
  Sex: Female
  Weight: 52.61 kg

DRUGS (1)
  1. DIFLUCAN [Suspect]
     Indication: YEAST INFECTION
     Dosage: 150 mg, single
     Route: 048
     Dates: start: 201206

REACTIONS (1)
  - Alopecia [Unknown]
